FAERS Safety Report 7578255-4 (Version None)
Quarter: 2011Q2

REPORT INFORMATION
  Report Type: 
  Country: None (occurrence: None)
  Receive Date: 20110628
  Receipt Date: 20110614
  Transmission Date: 20111010
  Serious: Yes (Life-Threatening, Hospitalization)
  Sender: FDA-Public Use
  Company Number: PL-JNJFOC-20110608197

PATIENT
  Age: 57 Year
  Sex: Male

DRUGS (3)
  1. AZULFIDINE [Concomitant]
     Indication: RHEUMATOID ARTHRITIS
  2. REMICADE [Suspect]
     Indication: RHEUMATOID ARTHRITIS
     Route: 042
  3. PREDNISONE [Concomitant]
     Indication: RHEUMATOID ARTHRITIS

REACTIONS (8)
  - PYREXIA [None]
  - BONE MARROW FAILURE [None]
  - RENAL FAILURE [None]
  - SKIN NECROSIS [None]
  - FATIGUE [None]
  - PSEUDOMONAS INFECTION [None]
  - LEUKOPENIA [None]
  - SEPSIS [None]
